FAERS Safety Report 14704219 (Version 1)
Quarter: 2018Q2

REPORT INFORMATION
  Report Type: Spontaneous
  Country: US (occurrence: US)
  Receive Date: 20180402
  Receipt Date: 20180402
  Transmission Date: 20180711
  Serious: No
  Sender: FDA-Public Use
  Company Number: US-ALLERGAN-1710847US

PATIENT
  Age: 81 Year
  Sex: Female

DRUGS (1)
  1. ASACOL [Suspect]
     Active Substance: MESALAMINE
     Indication: COLITIS ULCERATIVE
     Dosage: 400 MG, UNK
     Route: 048

REACTIONS (1)
  - Drug ineffective [Unknown]
